FAERS Safety Report 23500932 (Version 1)
Quarter: 2024Q1

REPORT INFORMATION
  Report Type: Spontaneous
  Country: CH (occurrence: CH)
  Receive Date: 20240208
  Receipt Date: 20240208
  Transmission Date: 20240410
  Serious: Yes (Other)
  Sender: FDA-Public Use
  Company Number: CH-AstraZeneca-2024A025349

PATIENT

DRUGS (6)
  1. GOSERELIN [Suspect]
     Active Substance: GOSERELIN
     Indication: Adenocarcinoma of salivary gland
     Dosage: UNK,
     Route: 058
     Dates: start: 201806, end: 202007
  2. ZOLADEX [Suspect]
     Active Substance: GOSERELIN ACETATE
     Indication: Adenocarcinoma of salivary gland
     Dosage: UNK
     Route: 065
  3. BICALUTAMIDE [Suspect]
     Active Substance: BICALUTAMIDE
     Indication: Adenocarcinoma of salivary gland
     Dosage: 150 MILLIGRAM, QD
     Route: 048
     Dates: start: 201806, end: 201907
  4. ENZALUTAMIDE [Concomitant]
     Active Substance: ENZALUTAMIDE
     Indication: Product used for unknown indication
     Dosage: UNK
     Route: 065
     Dates: start: 201907, end: 202007
  5. ADO-TRASTUZUMAB EMTANSINE [Concomitant]
     Active Substance: ADO-TRASTUZUMAB EMTANSINE
     Indication: Product used for unknown indication
     Dosage: UNK
     Route: 065
     Dates: start: 202008, end: 202107
  6. NERATINIB [Concomitant]
     Active Substance: NERATINIB
     Indication: Product used for unknown indication
     Dosage: 240 MG/DAY
     Dates: start: 202107, end: 202111

REACTIONS (7)
  - Malignant neoplasm progression [Recovered/Resolved]
  - Metastases to lung [Recovered/Resolved]
  - Metastases to adrenals [Recovered/Resolved]
  - Hepatic lesion [Recovered/Resolved]
  - Metastases to spine [Recovered/Resolved]
  - Metastases to lymph nodes [Recovered/Resolved]
  - Off label use [Unknown]

NARRATIVE: CASE EVENT DATE: 20190201
